FAERS Safety Report 7715151-3 (Version None)
Quarter: 2011Q3

REPORT INFORMATION
  Report Type: 
  Country: None (occurrence: None)
  Receive Date: 20110829
  Receipt Date: 20110817
  Transmission Date: 20111222
  Serious: Yes (Hospitalization, Other)
  Sender: FDA-Public Use
  Company Number: JP-BRISTOL-MYERS SQUIBB COMPANY-15994635

PATIENT
  Age: 31 Year
  Sex: Male

DRUGS (3)
  1. RITONAVIR [Suspect]
     Indication: HIV INFECTION
     Dates: start: 20071001
  2. REYATAZ [Suspect]
     Indication: HIV INFECTION
     Dates: start: 20071001
  3. EMTRICITABINE AND TENOFOVIR DISOPROXIL FUMARATE [Suspect]
     Indication: HIV INFECTION
     Dosage: 1DF: 1TAB.
     Dates: start: 20071001

REACTIONS (5)
  - COMA [None]
  - TONSILLITIS [None]
  - IMMUNE RECONSTITUTION SYNDROME [None]
  - AMOEBIC BRAIN ABSCESS [None]
  - AMOEBIC DYSENTERY [None]
